FAERS Safety Report 7114078-8 (Version None)
Quarter: 2010Q4

REPORT INFORMATION
  Report Type: 
  Country: None (occurrence: None)
  Receive Date: 20101119
  Receipt Date: 20101110
  Transmission Date: 20110411
  Serious: Yes (Hospitalization, Other)
  Sender: FDA-Public Use
  Company Number: BR-MEDIMMUNE-MEDI-0011698

PATIENT
  Sex: Female

DRUGS (12)
  1. SYNAGIS [Suspect]
     Dates: start: 20100301, end: 20100301
  2. SYNAGIS [Suspect]
  3. DIGOXIN [Concomitant]
  4. SPIRONOLACTONE [Concomitant]
  5. ADIPIL [Concomitant]
  6. FUROSEMIDE [Concomitant]
  7. LEVOTHYROXINE SODIUM [Concomitant]
     Indication: THYROID DISORDER
  8. METAMIZOLE SODIUM [Concomitant]
  9. METAMIZOLE SODIUM [Concomitant]
     Indication: PAIN
  10. PARACETAMOL [Concomitant]
  11. PARACETAMOL [Concomitant]
     Indication: PAIN
  12. SODIUM CHLORIDE 0.9% [Concomitant]
     Route: 055

REACTIONS (4)
  - CONSTIPATION [None]
  - GASTRIC DISORDER [None]
  - GASTROINTESTINAL DISORDER [None]
  - INFECTION [None]
